FAERS Safety Report 23667630 (Version 3)
Quarter: 2025Q3

REPORT INFORMATION
  Report Type: Spontaneous
  Country: TR (occurrence: TR)
  Receive Date: 20240325
  Receipt Date: 20250905
  Transmission Date: 20251021
  Serious: No
  Sender: MYLAN
  Company Number: TR-MYLANLABS-2024M1027049

PATIENT
  Age: 70 Year
  Sex: Female

DRUGS (1)
  1. LYRICA [Suspect]
     Active Substance: PREGABALIN
     Indication: Trigeminal neuralgia
     Dosage: 75 MILLIGRAM, QD (75 MG/DAY) (THE PATIENT BEEN USING IT FOR 8-9 YEARS)

REACTIONS (6)
  - Upper limb fracture [Unknown]
  - Fall [Unknown]
  - Balance disorder [Unknown]
  - Dizziness [Unknown]
  - Nausea [Unknown]
  - Somnolence [Unknown]
